FAERS Safety Report 7402646-5 (Version None)
Quarter: 2011Q2

REPORT INFORMATION
  Report Type: 
  Country: None (occurrence: None)
  Receive Date: 20110408
  Receipt Date: 20110406
  Transmission Date: 20111010
  Serious: No
  Sender: FDA-Public Use
  Company Number: US-PFIZER INC-2011076609

PATIENT
  Sex: Female
  Weight: 77.098 kg

DRUGS (10)
  1. THYROID TAB [Concomitant]
     Dosage: UNK
  2. ASCORBIC ACID [Concomitant]
     Dosage: UNK
  3. CHANTIX [Suspect]
     Dosage: 1 MG, 2X/DAY
     Route: 048
     Dates: start: 20110101
  4. METFORMIN [Concomitant]
     Dosage: UNK
  5. CHANTIX [Suspect]
     Indication: SMOKING CESSATION THERAPY
     Dosage: 0.5 MG, 1X/DAY
     Route: 048
     Dates: start: 20110325
  6. VITAMIN E [Concomitant]
     Dosage: UNK
  7. ACIDOPHILUS [Concomitant]
     Dosage: UNK
  8. COENZYME Q10 [Concomitant]
     Dosage: UNK
  9. HYDROCODONE [Concomitant]
     Dosage: UNK
  10. PROMETRIUM [Concomitant]
     Dosage: UNK

REACTIONS (1)
  - DYSPEPSIA [None]
